FAERS Safety Report 8216336-2 (Version None)
Quarter: 2012Q1

REPORT INFORMATION
  Report Type: 
  Country: None (occurrence: None)
  Receive Date: 20120316
  Receipt Date: 20120306
  Transmission Date: 20120608
  Serious: Yes (Other)
  Sender: FDA-Public Use
  Company Number: PHHY2012JP009772

PATIENT
  Sex: Male
  Weight: 82 kg

DRUGS (7)
  1. ATELEC [Concomitant]
     Indication: HYPERTENSION
     Dosage: 10 MG, UNK
     Route: 048
     Dates: start: 20040507
  2. DIOVAN [Concomitant]
     Indication: HYPERTENSION
     Dosage: 80 MG, UNK
     Route: 048
     Dates: start: 20040507
  3. AMARYL [Concomitant]
     Indication: DIABETES MELLITUS
     Dosage: 2 MG, UNK
     Route: 048
     Dates: start: 20040507
  4. ONEALFA [Concomitant]
     Indication: HYPOCALCAEMIA
     Dosage: 2 UG, UNK
     Route: 048
     Dates: start: 20050428
  5. DEPAKENE [Concomitant]
     Indication: EPILEPSY
     Dosage: 800 MG, UNK
     Route: 048
     Dates: start: 20040507
  6. RASILEZ [Suspect]
     Indication: HYPERTENSION
     Dosage: 150 MG, QD
     Route: 048
     Dates: start: 20110226, end: 20120118
  7. NOVORAPID [Concomitant]
     Indication: DIABETES MELLITUS
     Dosage: 18 IU, UNK
     Route: 058
     Dates: start: 20111128

REACTIONS (9)
  - CEREBRAL HAEMORRHAGE [None]
  - CENTRAL NERVOUS SYSTEM LESION [None]
  - DISTURBANCE IN ATTENTION [None]
  - GLYCOSYLATED HAEMOGLOBIN INCREASED [None]
  - LACUNAR INFARCTION [None]
  - BLOOD UREA INCREASED [None]
  - ROAD TRAFFIC ACCIDENT [None]
  - BLOOD GLUCOSE INCREASED [None]
  - BLOOD PRESSURE INCREASED [None]
